FAERS Safety Report 16791712 (Version 1)
Quarter: 2019Q4

REPORT INFORMATION
  Report Type: Spontaneous
  Country: US (occurrence: US)
  Receive Date: 20190910
  Receipt Date: 20190910
  Transmission Date: 20200122
  Serious: Yes (Hospitalization)
  Sender: FDA-Public Use
  Company Number: None

PATIENT
  Sex: Female

DRUGS (9)
  1. LOSARTAN. [Concomitant]
     Active Substance: LOSARTAN
  2. CLOPIDOGREL [Concomitant]
     Active Substance: CLOPIDOGREL BISULFATE
  3. PREDNISOLONE. [Concomitant]
     Active Substance: PREDNISOLONE
  4. ELIQUIS [Concomitant]
     Active Substance: APIXABAN
  5. FOLIC ACID. [Concomitant]
     Active Substance: FOLIC ACID
  6. HUMIRA [Suspect]
     Active Substance: ADALIMUMAB
     Indication: RHEUMATOID ARTHRITIS
     Dosage: 40 MG SUBCUTANEOUS EVERY 10 DAYS
     Route: 058
     Dates: start: 20170627
  7. METHOTREXATE. [Concomitant]
     Active Substance: METHOTREXATE
  8. LANSOPRAZOLE. [Concomitant]
     Active Substance: LANSOPRAZOLE
  9. TRIMETHOPRIM SOL [Concomitant]

REACTIONS (1)
  - Thrombosis [None]
